FAERS Safety Report 7819881 (Version 2)
Quarter: 2013Q4

REPORT INFORMATION
  Report Type: Spontaneous
  Country: US (occurrence: US)
  Receive Date: 20110221
  Receipt Date: 20131231
  Transmission Date: 20140711
  Serious: Yes (Death, Other)
  Sender: FDA-Public Use
  Company Number: US-RANBAXY-2010US-39579

PATIENT
  Age: 42 Year
  Sex: Female

DRUGS (2)
  1. PARACETAMOL [Suspect]
     Indication: PRODUCT USED FOR UNKNOWN INDICATION
     Dosage: UNK
     Route: 065
  2. PROPOFOL [Suspect]
     Indication: SEDATION
     Dosage: 1.89 GRAMS OVER 17 HOURS (RANGE OF 15-40 MCG/KG/MIN)
     Route: 042

REACTIONS (7)
  - Acute hepatic failure [Unknown]
  - Propofol infusion syndrome [Fatal]
  - Multi-organ failure [Fatal]
  - Cardiac arrest [Unknown]
  - Hypotension [None]
  - Hepatic encephalopathy [None]
  - Metabolic acidosis [None]
